FAERS Safety Report 9190640 (Version 2)
Quarter: 2013Q2

REPORT INFORMATION
  Report Type: Spontaneous
  Country: DE (occurrence: IT)
  Receive Date: 20130326
  Receipt Date: 20130408
  Transmission Date: 20140414
  Serious: Yes (Hospitalization)
  Sender: FDA-Public Use
  Company Number: IT-FRI-1000043726

PATIENT
  Age: 79 Year
  Sex: Male

DRUGS (3)
  1. MEMANTINE [Suspect]
     Indication: DEMENTIA ALZHEIMER^S TYPE
     Route: 048
     Dates: start: 20090301, end: 20130314
  2. KARVEZIDE [Suspect]
     Indication: HYPERTENSION
     Dosage: 125 MG
     Route: 048
     Dates: start: 19980301, end: 20130301
  3. PLAVIX [Concomitant]
     Indication: THROMBOSIS PROPHYLAXIS

REACTIONS (2)
  - Pancreatitis [Recovered/Resolved]
  - Vomiting [Recovered/Resolved]
